FAERS Safety Report 5570183-9 (Version None)
Quarter: 2007Q4

REPORT INFORMATION
  Report Type: 
  Country: None (occurrence: None)
  Receive Date: 20071220
  Receipt Date: 20071211
  Transmission Date: 20080405
  Serious: Yes (Life-Threatening, Hospitalization)
  Sender: FDA-Public Use
  Company Number: FR-PFIZER INC-2007104295

PATIENT
  Sex: Male

DRUGS (3)
  1. NEURONTIN [Suspect]
     Dates: start: 20040101, end: 20070601
  2. GABAPENTIN [Suspect]
     Dates: start: 20070601, end: 20070617
  3. LAMICTAL [Concomitant]
     Dates: start: 20040101

REACTIONS (1)
  - STATUS EPILEPTICUS [None]
